FAERS Safety Report 8548563-9 (Version None)
Quarter: 2012Q3

REPORT INFORMATION
  Report Type: 
  Country: None (occurrence: None)
  Receive Date: 20120730
  Receipt Date: 20120718
  Transmission Date: 20120928
  Serious: Yes (Other)
  Sender: FDA-Public Use
  Company Number: GB-NOVOPROD-350021

PATIENT
  Age: 69 Year
  Sex: Male
  Weight: 98.7 kg

DRUGS (7)
  1. METFORMIN HYDROCHLORIDE [Concomitant]
     Indication: PRODUCT USED FOR UNKNOWN INDICATION
     Dosage: 2 G, QD
  2. VICTOZA [Suspect]
     Indication: TYPE 2 DIABETES MELLITUS
     Dosage: 0.6 MG, QD
     Route: 065
     Dates: start: 20111101, end: 20120127
  3. INDAPAMIDE [Concomitant]
     Dosage: 1.25 MG, QD
  4. SITAGLIPTIN [Concomitant]
     Indication: PRODUCT USED FOR UNKNOWN INDICATION
     Dosage: UNK
  5. ASPIRIN [Concomitant]
     Dosage: 75 MG, QD
  6. PERINDOPRIL ERBUMINE [Concomitant]
     Dosage: 5 MG, QD
  7. ATORVASTATIN [Concomitant]
     Dosage: 10 MG, QD

REACTIONS (5)
  - LOSS OF CONSCIOUSNESS [None]
  - CONSTIPATION [None]
  - DIZZINESS [None]
  - WEIGHT DECREASED [None]
  - DECREASED APPETITE [None]
